FAERS Safety Report 13046087 (Version 1)
Quarter: 2016Q4

REPORT INFORMATION
  Report Type: Spontaneous
  Country: SE (occurrence: SE)
  Receive Date: 20161220
  Receipt Date: 20161220
  Transmission Date: 20170207
  Serious: Yes (Hospitalization)
  Sender: FDA-Public Use
  Company Number: SE-TEVA-718773ACC

PATIENT
  Age: 37 Year
  Sex: Female

DRUGS (7)
  1. STILNOCT [Concomitant]
     Active Substance: ZOLPIDEM TARTRATE
  2. ALVEDON 665 MG MODIFIED-RELEASE TABLET [Suspect]
     Active Substance: ACETAMINOPHEN
     Dosage: 1041 MG/KG100 ST
     Route: 048
     Dates: start: 20120218
  3. TRADOLAN [Suspect]
     Active Substance: TRAMADOL
     Route: 048
     Dates: start: 20120218, end: 20120218
  4. OMEPRAZOLE. [Concomitant]
     Active Substance: OMEPRAZOLE
  5. NEXIUM [Concomitant]
     Active Substance: ESOMEPRAZOLE MAGNESIUM
  6. STESOLID [Suspect]
     Active Substance: DIAZEPAM
     Route: 048
     Dates: start: 20120218, end: 20120218
  7. SERTRALINE [Concomitant]
     Active Substance: SERTRALINE HYDROCHLORIDE

REACTIONS (8)
  - Analgesic drug level increased [Recovered/Resolved]
  - Aspartate aminotransferase increased [Recovered/Resolved]
  - International normalised ratio increased [Unknown]
  - Loss of consciousness [Recovered/Resolved]
  - Overdose [Recovered/Resolved]
  - Alanine aminotransferase increased [Unknown]
  - Toxicity to various agents [Recovered/Resolved]
  - Intentional self-injury [Recovered/Resolved]

NARRATIVE: CASE EVENT DATE: 20120218
